FAERS Safety Report 4681114-8 (Version None)
Quarter: 2005Q2

REPORT INFORMATION
  Report Type: 
  Country: None (occurrence: None)
  Receive Date: 20050603
  Receipt Date: 20050525
  Transmission Date: 20051028
  Serious: Yes (Hospitalization)
  Sender: FDA-Public Use
  Company Number: US-KINGPHARMUSA00001-K200500736

PATIENT
  Age: 76 Year
  Sex: Female

DRUGS (6)
  1. ALTACE [Suspect]
     Indication: ESSENTIAL HYPERTENSION
     Dosage: 2 MG, QD
     Route: 048
  2. DITROPAN [Suspect]
     Dosage: 5 MG, QD
     Route: 048
  3. AROPAX [Suspect]
     Indication: ANXIETY
     Dosage: 10 MG, QD
     Route: 048
  4. ASPIRIN [Concomitant]
     Dosage: 100 MG, UNK
     Route: 048
  5. QUININE SULPHATE [Concomitant]
     Dosage: UNK, PRN
     Route: 048
  6. TENOXICAM [Concomitant]
     Dosage: 500 UG, UNK
     Route: 048

REACTIONS (2)
  - DELIRIUM [None]
  - HYPONATRAEMIA [None]
